FAERS Safety Report 5377685-9 (Version None)
Quarter: 2007Q3

REPORT INFORMATION
  Report Type: 
  Country: None (occurrence: None)
  Receive Date: 20070703
  Receipt Date: 20070622
  Transmission Date: 20080115
  Serious: Yes (Hospitalization)
  Sender: FDA-Public Use
  Company Number: ES-PFIZER INC-2007038929

PATIENT
  Sex: Female

DRUGS (5)
  1. SU-011,248 [Suspect]
     Indication: BREAST CANCER
     Route: 048
     Dates: start: 20070310, end: 20070502
  2. DOCETAXEL [Suspect]
     Indication: BREAST CANCER
     Route: 042
  3. IBUPROFEN [Concomitant]
  4. FORTECORTIN [Concomitant]
     Dates: start: 20070301, end: 20070419
  5. ADOLONTA [Concomitant]
     Dates: start: 20070412, end: 20070415

REACTIONS (1)
  - HAEMATOMA INFECTION [None]
